FAERS Safety Report 5381791-2 (Version None)
Quarter: 2007Q3

REPORT INFORMATION
  Report Type: 
  Country: None (occurrence: None)
  Receive Date: 20070705
  Receipt Date: 20070705
  Transmission Date: 20080115
  Serious: No
  Sender: FDA-Public Use
  Company Number: None

PATIENT
  Age: 33 Year
  Sex: Female
  Weight: 58.9676 kg

DRUGS (1)
  1. TRAMADOL HCL [Suspect]
     Indication: BACK INJURY
     Dosage: PO
     Route: 048
     Dates: start: 20061010, end: 20061011

REACTIONS (1)
  - PRURITUS GENERALISED [None]
